FAERS Safety Report 8822980 (Version 2)
Quarter: 2012Q4

REPORT INFORMATION
  Report Type: 
  Country: US (occurrence: US)
  Receive Date: 20121003
  Receipt Date: 20121019
  Transmission Date: 20130627
  Serious: Yes (Hospitalization, Other)
  Sender: FDA-Public Use
  Company Number: US-BRISTOL-MYERS SQUIBB COMPANY-16999419

PATIENT
  Age: 64 Year
  Sex: Female
  Weight: 56 kg

DRUGS (4)
  1. YERVOY [Suspect]
     Indication: MALIGNANT MELANOMA
     Dosage: Total Dose:4
last dose:23Jul12,May0112
maintanence dose:every 12wks
received 150mg,rcnt:175mg
     Route: 042
     Dates: start: 20111004, end: 20120501
  2. HYDROCORTISONE [Suspect]
     Dosage: 1DF: 20mg QAM,5mg QPM.
     Dates: start: 201204
  3. SYNTHROID [Concomitant]
  4. MEGACE [Concomitant]

REACTIONS (3)
  - Normal pressure hydrocephalus [Recovered/Resolved with Sequelae]
  - Hypophysitis [Unknown]
  - Adrenocortical insufficiency acute [Unknown]
